FAERS Safety Report 18628233 (Version 1)
Quarter: 2020Q4

REPORT INFORMATION
  Report Type: Spontaneous
  Country: US (occurrence: US)
  Receive Date: 20201216
  Receipt Date: 20201216
  Transmission Date: 20210114
  Serious: Yes (Other)
  Sender: FDA-Public Use
  Company Number: None

PATIENT
  Age: 50 Year
  Sex: Female

DRUGS (1)
  1. BETASERON [Suspect]
     Active Substance: INTERFERON BETA-1B
     Route: 058
     Dates: start: 2010

REACTIONS (4)
  - Infusion related reaction [None]
  - Sensation of foreign body [None]
  - Therapy interrupted [None]
  - Drug hypersensitivity [None]

NARRATIVE: CASE EVENT DATE: 20201210
